FAERS Safety Report 9400805 (Version 1)
Quarter: 2013Q3

REPORT INFORMATION
  Report Type: Spontaneous
  Country: NL (occurrence: NL)
  Receive Date: 20130715
  Receipt Date: 20130715
  Transmission Date: 20140515
  Serious: Yes (Other)
  Sender: FDA-Public Use
  Company Number: NL-ACTAVIS-2013-12046

PATIENT
  Age: 27 Year
  Sex: Female

DRUGS (3)
  1. OMEPRAZOLE (UNKNOWN) [Suspect]
     Indication: ABDOMINAL PAIN UPPER
     Dosage: UNK
     Route: 065
  2. METHOTREXATE [Concomitant]
     Indication: PSORIASIS
     Dosage: 15 MG, 1/WEEK
     Route: 065
  3. DESOXIMETASONE [Concomitant]
     Indication: PSORIASIS
     Dosage: UNK
     Route: 061

REACTIONS (1)
  - Drug eruption [Recovered/Resolved]
